FAERS Safety Report 7364042-9 (Version None)
Quarter: 2011Q1

REPORT INFORMATION
  Report Type: 
  Country: None (occurrence: None)
  Receive Date: 20110321
  Receipt Date: 20110307
  Transmission Date: 20110831
  Serious: Yes (Other)
  Sender: FDA-Public Use
  Company Number: PHHY2011JP19419

PATIENT
  Age: 88 Year
  Sex: Female

DRUGS (3)
  1. TAMOXIFEN CITRATE [Concomitant]
     Route: 048
  2. ZOMETA [Suspect]
     Indication: METASTASES TO BONE
     Dosage: 4 MG,
     Dates: end: 20100222
  3. ZOMETA [Suspect]
     Dosage: 3 MG,
     Dates: start: 20100319, end: 20100611

REACTIONS (3)
  - OSTEOMYELITIS [None]
  - OSTEITIS [None]
  - PAIN IN JAW [None]
